FAERS Safety Report 8777999 (Version 3)
Quarter: 2012Q4

REPORT INFORMATION
  Report Type: Report from Study
  Country: US (occurrence: US)
  Receive Date: 20120912
  Receipt Date: 20121011
  Transmission Date: 20130627
  Serious: Yes (Hospitalization)
  Sender: FDA-Public Use
  Company Number: US-JNJFOC-20120903772

PATIENT
  Age: 17 Year
  Sex: Female
  Weight: 37.4 kg

DRUGS (4)
  1. REMICADE [Suspect]
     Indication: CROHN^S DISEASE
     Route: 042
     Dates: start: 20110418, end: 20120203
  2. CIMZIA [Concomitant]
     Dates: start: 20120418
  3. 6-MERCAPTOPURINE [Concomitant]
  4. PREDNISONE [Concomitant]

REACTIONS (2)
  - Crohn^s disease [Recovered/Resolved]
  - Malnutrition [Recovered/Resolved]
